FAERS Safety Report 4373021-5 (Version None)
Quarter: 2004Q2

REPORT INFORMATION
  Report Type: 
  Country: None (occurrence: None)
  Receive Date: 20040603
  Receipt Date: 20040517
  Transmission Date: 20050107
  Serious: Yes (Other)
  Sender: FDA-Public Use
  Company Number: USA040567746

PATIENT
  Age: 77 Year
  Sex: Female
  Weight: 42 kg

DRUGS (5)
  1. FORTEO [Suspect]
     Indication: OSTEOPOROSIS
     Dosage: 20 UG DAY
     Dates: start: 20030901
  2. MIACALCIN [Concomitant]
  3. SYNTHROID [Concomitant]
  4. VIOXX [Concomitant]
  5. MULTIVITAMIN [Concomitant]

REACTIONS (5)
  - DIFFICULTY IN WALKING [None]
  - FALL [None]
  - JOINT SPRAIN [None]
  - PELVIC FRACTURE [None]
  - PHARMACEUTICAL PRODUCT COMPLAINT [None]
